FAERS Safety Report 18973809 (Version 1)
Quarter: 2021Q1

REPORT INFORMATION
  Report Type: Spontaneous
  Country: US (occurrence: US)
  Receive Date: 20210305
  Receipt Date: 20210305
  Transmission Date: 20210420
  Serious: No
  Sender: FDA-Public Use
  Company Number: US-MYLANLABS-2021M1011766

PATIENT
  Sex: Female

DRUGS (1)
  1. FONDAPARINUX SODIUM INJECTION, USP [Suspect]
     Active Substance: FONDAPARINUX SODIUM
     Indication: PRODUCT USED FOR UNKNOWN INDICATION
     Dosage: UNK
     Route: 058

REACTIONS (1)
  - Anti factor X activity increased [Not Recovered/Not Resolved]
